FAERS Safety Report 8298046-9 (Version None)
Quarter: 2012Q2

REPORT INFORMATION
  Report Type: 
  Country: None (occurrence: None)
  Receive Date: 20120419
  Receipt Date: 20120411
  Transmission Date: 20120825
  Serious: Yes (Hospitalization)
  Sender: FDA-Public Use
  Company Number: JP-BAYER-2012-033716

PATIENT
  Age: 60 Year
  Sex: Male

DRUGS (5)
  1. LOXOPROFEN SODIUM [Suspect]
  2. MECOBALAMIN [Suspect]
  3. ECABET [Suspect]
     Route: 048
  4. ASPIRIN [Suspect]
     Route: 048
  5. REBAMIPIDE [Suspect]

REACTIONS (4)
  - PORTAL HYPERTENSION [None]
  - LIVER INJURY [None]
  - VENOOCCLUSIVE LIVER DISEASE [None]
  - EOSINOPHILIA [None]
